FAERS Safety Report 23108972 (Version 1)
Quarter: 2023Q4

REPORT INFORMATION
  Report Type: Spontaneous
  Country: US (occurrence: None)
  Receive Date: 20231026
  Receipt Date: 20231026
  Transmission Date: 20240110
  Serious: Yes (Other)
  Sender: FDA-Public Use
  Company Number: US-Unichem Pharmaceuticals (USA) Inc-UCM202310-001316

PATIENT
  Sex: Female

DRUGS (1)
  1. TOPIRAMATE [Suspect]
     Active Substance: TOPIRAMATE
     Indication: Migraine

REACTIONS (6)
  - Amnesia [Unknown]
  - Abdominal pain lower [Unknown]
  - Dizziness [Unknown]
  - Fatigue [Unknown]
  - Diarrhoea [Unknown]
  - Nausea [Unknown]
